FAERS Safety Report 17099170 (Version 1)
Quarter: 2019Q4

REPORT INFORMATION
  Report Type: Spontaneous
  Country: CA (occurrence: CA)
  Receive Date: 20191130
  Receipt Date: 20191130
  Transmission Date: 20200122
  Serious: Yes (Disabling)
  Sender: FDA-Public Use
  Company Number: None

PATIENT
  Age: 68 Year
  Sex: Female
  Weight: 56.25 kg

DRUGS (1)
  1. CIPROFLOXIN [Suspect]
     Active Substance: CIPROFLOXACIN
     Indication: CYSTITIS
     Route: 048

REACTIONS (8)
  - Fatigue [None]
  - Feeling abnormal [None]
  - Parkinson^s disease [None]
  - Chest pain [None]
  - Neck pain [None]
  - Pain in extremity [None]
  - Arthralgia [None]
  - Parosmia [None]

NARRATIVE: CASE EVENT DATE: 20091101
